FAERS Safety Report 5657172-0 (Version None)
Quarter: 2008Q1

REPORT INFORMATION
  Report Type: 
  Country: None (occurrence: None)
  Receive Date: 20080310
  Receipt Date: 20080226
  Transmission Date: 20080703
  Serious: Yes (Other)
  Sender: FDA-Public Use
  Company Number: DE-AMGEN-UK263202

PATIENT
  Sex: Female
  Weight: 60 kg

DRUGS (17)
  1. KEPIVANCE [Suspect]
     Indication: MUCOSAL INFLAMMATION
     Route: 042
     Dates: start: 20071104, end: 20071117
  2. METHOTREXATE [Concomitant]
     Route: 042
     Dates: start: 20071110, end: 20071110
  3. RITUXIMAB [Concomitant]
     Route: 042
     Dates: start: 20071109, end: 20071109
  4. TAVEGIL [Concomitant]
     Route: 042
     Dates: start: 20071109, end: 20071109
  5. TAGAMET [Concomitant]
     Route: 042
     Dates: start: 20071109, end: 20071109
  6. ACETAMINOPHEN [Concomitant]
     Route: 048
     Dates: start: 20071109, end: 20071109
  7. VINCRISTINE [Concomitant]
     Route: 042
     Dates: start: 20071110, end: 20071110
  8. CYCLOPHOSPHAMIDE [Concomitant]
     Route: 042
     Dates: start: 20071110, end: 20071114
  9. MESNA [Concomitant]
     Route: 042
     Dates: start: 20071110, end: 20071114
  10. ADRIAMYCIN PFS [Concomitant]
     Route: 042
     Dates: start: 20071113, end: 20071114
  11. LEUCOVORIN CALCIUM [Concomitant]
     Route: 042
     Dates: start: 20071112, end: 20071112
  12. DEXAMETHASONE TAB [Concomitant]
     Route: 048
     Dates: start: 20071110, end: 20071114
  13. METHOTREXATE [Concomitant]
     Route: 037
     Dates: start: 20071110, end: 20071114
  14. DEXAMETHASONE TAB [Concomitant]
     Route: 037
     Dates: start: 20071110, end: 20071114
  15. CYTARABINE [Concomitant]
     Route: 037
     Dates: start: 20071110, end: 20071114
  16. ONDANSETRON [Concomitant]
     Route: 042
     Dates: start: 20071110, end: 20071115
  17. LASIX [Concomitant]
     Route: 042
     Dates: start: 20071101, end: 20071115

REACTIONS (2)
  - EPIDERMOLYSIS [None]
  - GENERALISED ERYTHEMA [None]
